FAERS Safety Report 5822811-8 (Version None)
Quarter: 2008Q3

REPORT INFORMATION
  Report Type: 
  Country: None (occurrence: None)
  Receive Date: 20080725
  Receipt Date: 20080716
  Transmission Date: 20090109
  Serious: Yes (Other)
  Sender: FDA-Public Use
  Company Number: GB-ASTRAZENECA-2008GB01355

PATIENT
  Age: 21439 Day
  Sex: Female

DRUGS (2)
  1. SYMBICORT [Suspect]
     Indication: CHRONIC OBSTRUCTIVE PULMONARY DISEASE
     Dosage: 100/6 UG, FREQUENCY NOT PROVIDED
     Route: 055
     Dates: start: 20071003, end: 20080601
  2. SYMBICORT [Suspect]
     Dosage: 200/6 UG, FREQUENCY NOT PROVIDED
     Route: 055
     Dates: start: 20080601

REACTIONS (3)
  - DIZZINESS [None]
  - OXYGEN SATURATION DECREASED [None]
  - UNDERDOSE [None]
